FAERS Safety Report 7275122-0 (Version None)
Quarter: 2011Q1

REPORT INFORMATION
  Report Type: 
  Country: None (occurrence: None)
  Receive Date: 20110204
  Receipt Date: 20110128
  Transmission Date: 20110831
  Serious: Yes (Hospitalization)
  Sender: FDA-Public Use
  Company Number: JP-ROCHE-752802

PATIENT
  Sex: Female
  Weight: 57 kg

DRUGS (17)
  1. ACTEMRA [Suspect]
     Indication: RHEUMATOID ARTHRITIS
     Route: 041
     Dates: start: 20090911, end: 20090911
  2. ACTEMRA [Suspect]
     Route: 041
     Dates: start: 20091106, end: 20091106
  3. ACTEMRA [Suspect]
     Route: 041
     Dates: start: 20100204, end: 20100204
  4. ACTEMRA [Suspect]
     Route: 041
     Dates: start: 20100304, end: 20100304
  5. PREDNISOLONE [Concomitant]
     Route: 048
     Dates: start: 20091010, end: 20091204
  6. VOLTAREN [Concomitant]
     Route: 054
     Dates: end: 20091204
  7. KETOPROFEN [Concomitant]
     Dosage: DOSE FORM: TAPE
     Route: 061
  8. ACTEMRA [Suspect]
     Route: 041
     Dates: start: 20100106, end: 20100106
  9. ACTEMRA [Suspect]
     Route: 041
     Dates: start: 20091009, end: 20091009
  10. PREDNISOLONE [Concomitant]
     Dosage: DOSE FORM: PERORAL AGENT
     Route: 048
     Dates: end: 20091009
  11. MYSLEE [Concomitant]
     Route: 048
  12. ACTEMRA [Suspect]
     Route: 041
     Dates: start: 20091204, end: 20091204
  13. ACTEMRA [Suspect]
     Route: 041
     Dates: start: 20100401
  14. MAGLAX [Concomitant]
     Route: 048
  15. PREDNISOLONE [Concomitant]
     Route: 048
  16. LIVALO [Concomitant]
     Route: 048
  17. INFLUENZA A VACCINE [Concomitant]
     Dosage: DOSAGE IS UNCERTAIN
     Route: 058
     Dates: start: 20101101, end: 20101101

REACTIONS (5)
  - INFUSION SITE EXTRAVASATION [None]
  - INFECTION IN AN IMMUNOCOMPROMISED HOST [None]
  - HERPES ZOSTER [None]
  - PRURITUS [None]
  - PYREXIA [None]
